FAERS Safety Report 7998644-3 (Version None)
Quarter: 2011Q4

REPORT INFORMATION
  Report Type: 
  Country: None (occurrence: None)
  Receive Date: 20111221
  Receipt Date: 20111213
  Transmission Date: 20120403
  Serious: Yes (Other)
  Sender: FDA-Public Use
  Company Number: US-ROCHE-794553

PATIENT
  Sex: Male
  Weight: 68.1 kg

DRUGS (2)
  1. ACCUTANE [Suspect]
     Indication: ACNE
     Route: 048
     Dates: start: 19971229, end: 19980406
  2. ACCUTANE [Suspect]
     Route: 048
     Dates: start: 19990101, end: 19990611

REACTIONS (7)
  - INTESTINAL HAEMORRHAGE [None]
  - COLITIS ULCERATIVE [None]
  - INFLAMMATORY BOWEL DISEASE [None]
  - DEPRESSION [None]
  - CHAPPED LIPS [None]
  - ANXIETY [None]
  - STRESS [None]
